FAERS Safety Report 8244365-1 (Version None)
Quarter: 2012Q1

REPORT INFORMATION
  Report Type: 
  Country: None (occurrence: None)
  Receive Date: 20120329
  Receipt Date: 20120326
  Transmission Date: 20120608
  Serious: Yes (Death, Hospitalization)
  Sender: FDA-Public Use
  Company Number: SE-B.I. PHARMACEUTICALS,INC./RIDGEFIELD-2012-SW-00130SW

PATIENT
  Age: 90 Year
  Sex: Male

DRUGS (6)
  1. OMEPRAZOLE [Concomitant]
  2. HUMALOG [Concomitant]
     Dosage: STRENGTH: LOW DOSE
  3. NOVORAPID [Concomitant]
  4. PRADAXA [Suspect]
     Indication: THROMBOSIS PROPHYLAXIS
     Dosage: 150 MG
     Dates: start: 20120201, end: 20120213
  5. PRADAXA [Suspect]
     Indication: HIP SURGERY
  6. PAPAVERIN [Concomitant]

REACTIONS (6)
  - ANAEMIA [None]
  - FAECES DISCOLOURED [None]
  - VENTRICULAR FIBRILLATION [None]
  - HAEMOGLOBIN DECREASED [None]
  - GASTROINTESTINAL HAEMORRHAGE [None]
  - PALLOR [None]
